FAERS Safety Report 17616998 (Version 1)
Quarter: 2020Q2

REPORT INFORMATION
  Report Type: Spontaneous
  Country: CZ (occurrence: CZ)
  Receive Date: 20200402
  Receipt Date: 20200402
  Transmission Date: 20200713
  Serious: Yes (Other)
  Sender: FDA-Public Use
  Company Number: CZ-US-PROVELL PHARMACEUTICALS LLC-9154299

PATIENT
  Sex: Female

DRUGS (3)
  1. FLAVOBION [Concomitant]
     Indication: PRODUCT USED FOR UNKNOWN INDICATION
  2. EUTHYROX [Suspect]
     Active Substance: LEVOTHYROXINE SODIUM
     Indication: THYROID MASS
  3. DEMAZIN                            /00014501/ [Concomitant]
     Indication: HAEMORRHOIDS

REACTIONS (8)
  - Bladder disorder [Unknown]
  - Pulpitis dental [Unknown]
  - Fear of disease [Unknown]
  - Blood pressure increased [Unknown]
  - Irritable bowel syndrome [Unknown]
  - Helicobacter infection [Unknown]
  - Hepatic steatosis [Not Recovered/Not Resolved]
  - Iron deficiency [Unknown]

NARRATIVE: CASE EVENT DATE: 2018
